FAERS Safety Report 11220359 (Version 1)
Quarter: 2015Q2

REPORT INFORMATION
  Report Type: Spontaneous
  Country: US (occurrence: None)
  Receive Date: 20150625
  Receipt Date: 20150625
  Transmission Date: 20150821
  Serious: No
  Sender: FDA-Public Use
  Company Number: None

PATIENT

DRUGS (2)
  1. VASOPRESSIN. [Suspect]
     Active Substance: VASOPRESSIN
     Dosage: INJECTABLE?20 UNITS.ML?VIAL
  2. DESMOPRESSIN ACETATE. [Suspect]
     Active Substance: DESMOPRESSIN ACETATE

REACTIONS (3)
  - Drug dispensing error [None]
  - Product label confusion [None]
  - Product name confusion [None]
